FAERS Safety Report 6409059-3 (Version None)
Quarter: 2009Q4

REPORT INFORMATION
  Report Type: 
  Country: None (occurrence: None)
  Receive Date: 20091019
  Receipt Date: 20091007
  Transmission Date: 20100525
  Serious: Yes (Other)
  Sender: FDA-Public Use
  Company Number: 231716K09USA

PATIENT
  Age: 47 Year
  Sex: Female

DRUGS (8)
  1. REBIF [Suspect]
     Indication: MULTIPLE SCLEROSIS
     Dosage: 44 MCG, 3 IN 1 WEEKS,  SUBCUTANEOUS
     Route: 058
     Dates: start: 20071231
  2. TOPAMAX [Suspect]
     Indication: MIGRAINE
     Dates: start: 20071231
  3. TOPAMAX [Suspect]
     Indication: MIGRAINE
     Dates: start: 20081231
  4. NORCO [Concomitant]
  5. FLUOXETINE [Concomitant]
  6. UNSPECIFIED PAIN MEDICATION (ALL OTHER THERAPEUTIC PRODUCTS) [Concomitant]
  7. VITAMIN B12 (HYDROXOCOBALAMIN) [Concomitant]
  8. PROVIGIL [Concomitant]

REACTIONS (2)
  - CONVULSION [None]
  - ELECTROENCEPHALOGRAM ABNORMAL [None]
